FAERS Safety Report 16371126 (Version 2)
Quarter: 2019Q2

REPORT INFORMATION
  Report Type: Report from Study
  Country: JP (occurrence: JP)
  Receive Date: 20190530
  Receipt Date: 20190611
  Transmission Date: 20190711
  Serious: Yes (Hospitalization, Other)
  Sender: FDA-Public Use
  Company Number: JP-BRISTOL-MYERS SQUIBB COMPANY-21614631

PATIENT
  Age: 64 Year
  Sex: Male
  Weight: 65 kg

DRUGS (17)
  1. BESACOLIN [Concomitant]
     Active Substance: BETHANECHOL CHLORIDE
     Indication: DYSURIA
     Dosage: 10 MILLIGRAM, TID
     Route: 048
     Dates: start: 20141031
  2. HARNAL [Concomitant]
     Active Substance: TAMSULOSIN HYDROCHLORIDE
     Indication: DYSURIA
     Dosage: 0.2 MILLIGRAM, QD
     Route: 048
     Dates: start: 20140323
  3. LYRICA [Concomitant]
     Active Substance: PREGABALIN
     Indication: SENSORY DISTURBANCE
     Dosage: 100 MILLIGRAM, BID
     Route: 048
  4. LASIX [Concomitant]
     Active Substance: FUROSEMIDE
     Indication: OEDEMA
     Dosage: 30 MILLIGRAM, QD
     Route: 048
     Dates: start: 20150804
  5. APIXABAN [Suspect]
     Active Substance: APIXABAN
     Indication: CEREBROVASCULAR ACCIDENT PROPHYLAXIS
     Dosage: 5 MILLIGRAM, BID
     Route: 048
     Dates: start: 20140203, end: 20140926
  6. URIEF [Concomitant]
     Active Substance: SILODOSIN
     Indication: PRODUCT USED FOR UNKNOWN INDICATION
     Dosage: 2 MILLIGRAM, QD
     Route: 048
     Dates: end: 20161010
  7. GASMOTIN [Concomitant]
     Active Substance: MOSAPRIDE CITRATE
     Indication: PRODUCT USED FOR UNKNOWN INDICATION
     Dosage: 5 MILLIGRAM, TID
     Route: 048
  8. SODIUM FERRIC CITRATE [Concomitant]
     Active Substance: FERRIC SODIUM CITRATE
     Indication: PRODUCT USED FOR UNKNOWN INDICATION
     Dosage: 50 MILLIGRAM, BID
     Route: 065
     Dates: start: 20160607
  9. GASTER [Concomitant]
     Active Substance: FAMOTIDINE
     Indication: PRODUCT USED FOR UNKNOWN INDICATION
     Dosage: 20 MILLIGRAM, QD
     Route: 048
  10. MAGMITT [Concomitant]
     Active Substance: MAGNESIUM OXIDE
     Indication: CONSTIPATION
     Dosage: 500 MILLIGRAM, TID
     Route: 048
  11. APIXABAN [Suspect]
     Active Substance: APIXABAN
     Indication: PRODUCT USED FOR UNKNOWN INDICATION
     Dosage: 5 MILLIGRAM, BID
     Route: 048
     Dates: start: 20141110
  12. RIVOTRIL [Concomitant]
     Active Substance: CLONAZEPAM
     Indication: SENSORY DISTURBANCE
     Dosage: 1 MILLIGRAM, QD
     Route: 048
  13. VYNDAQEL [Suspect]
     Active Substance: TAFAMIDIS MEGLUMINE
     Indication: HEREDITARY NEUROPATHIC AMYLOIDOSIS
     Dosage: 20 MILLIGRAM, QD
     Route: 048
     Dates: start: 20140325
  14. LIVALO [Concomitant]
     Active Substance: PITAVASTATIN CALCIUM
     Indication: LIPID METABOLISM DISORDER
     Dosage: 1 MILLIGRAM, QD
     Route: 048
     Dates: start: 20160803
  15. AMBROXOL HYDROCHLORIDE [Concomitant]
     Active Substance: AMBROXOL HYDROCHLORIDE
     Indication: PRODUCTIVE COUGH
     Dosage: 45 MILLIGRAM, QD
     Route: 048
     Dates: start: 20151201
  16. BAYASPIRIN [Suspect]
     Active Substance: ASPIRIN
     Indication: MYOCARDIAL ISCHAEMIA
     Dosage: UNK
     Route: 048
     Dates: end: 20140926
  17. BAYASPIRIN [Suspect]
     Active Substance: ASPIRIN
     Indication: PRODUCT USED FOR UNKNOWN INDICATION
     Dosage: UNK
     Route: 048
     Dates: start: 20140930

REACTIONS (6)
  - Electrocoagulation [Unknown]
  - Blood pressure decreased [Unknown]
  - Transfusion [Unknown]
  - Anaemia [Unknown]
  - Haematuria [Recovering/Resolving]
  - Bladder irrigation [Unknown]

NARRATIVE: CASE EVENT DATE: 20140427
